FAERS Safety Report 7396392-4 (Version None)
Quarter: 2011Q1

REPORT INFORMATION
  Report Type: 
  Country: None (occurrence: None)
  Receive Date: 20110325
  Receipt Date: 20110314
  Transmission Date: 20110831
  Serious: Yes (Hospitalization)
  Sender: FDA-Public Use
  Company Number: 2011MA002386

PATIENT
  Age: 62 Year
  Sex: Female

DRUGS (1)
  1. CARBAMAZEPINE [Suspect]
     Indication: TRIGEMINAL NEURALGIA
     Dosage: 200 MG; QD;

REACTIONS (6)
  - HUMAN HERPESVIRUS 6 INFECTION [None]
  - PNEUMONIA [None]
  - LYMPHOCYTE STIMULATION TEST POSITIVE [None]
  - NO THERAPEUTIC RESPONSE [None]
  - DRUG RASH WITH EOSINOPHILIA AND SYSTEMIC SYMPTOMS [None]
  - CYTOMEGALOVIRUS INFECTION [None]
